FAERS Safety Report 4934134-X (Version None)
Quarter: 2006Q1

REPORT INFORMATION
  Report Type: 
  Country: None (occurrence: None)
  Receive Date: 20060303
  Receipt Date: 20060221
  Transmission Date: 20060701
  Serious: Yes (Hospitalization, Other)
  Sender: FDA-Public Use
  Company Number: 2006026089

PATIENT
  Age: 72 Year
  Sex: Female
  Weight: 67.1324 kg

DRUGS (3)
  1. AROMASIN [Suspect]
     Indication: BREAST CANCER
     Dosage: 25 MG (25 M, DAILY), ORAL
     Route: 048
     Dates: start: 20050601
  2. ACTONEL [Concomitant]
  3. TAMOXIFEN CITRATE [Concomitant]

REACTIONS (6)
  - BLOOD CALCIUM ABNORMAL [None]
  - DISEASE RECURRENCE [None]
  - HYPOTHYROIDISM [None]
  - NEPHROLITHIASIS [None]
  - OSTEOPOROSIS [None]
  - PARATHYROID TUMOUR BENIGN [None]
